FAERS Safety Report 6134956-6 (Version None)
Quarter: 2009Q1

REPORT INFORMATION
  Report Type: 
  Country: None (occurrence: None)
  Receive Date: 20090327
  Receipt Date: 20090318
  Transmission Date: 20090719
  Serious: Yes (Hospitalization, Disabling)
  Sender: FDA-Public Use
  Company Number: JP-ABBOTT-07P-087-0360248-00

PATIENT
  Age: 71 Year
  Sex: Male

DRUGS (8)
  1. LUPRON DEPOT [Suspect]
     Indication: PROSTATE CANCER STAGE IV
     Route: 058
     Dates: start: 20060106, end: 20060106
  2. LUPRON DEPOT [Suspect]
     Dates: start: 20060331, end: 20060331
  3. LUPRON DEPOT [Suspect]
     Dates: start: 20060623, end: 20060623
  4. LUPRON DEPOT [Suspect]
     Dates: start: 20060915, end: 20060915
  5. LUPRON DEPOT [Suspect]
     Dates: start: 20061206, end: 20061206
  6. LUPRON DEPOT [Suspect]
  7. TAMSULOSIN HYDROCHLORIDE [Concomitant]
     Indication: BENIGN PROSTATIC HYPERPLASIA
     Route: 048
     Dates: start: 20050502, end: 20060526
  8. CHLORMADINONE ACETATE TAB [Concomitant]
     Indication: PROSTATE CANCER STAGE IV
     Route: 048
     Dates: start: 20061108

REACTIONS (4)
  - ALANINE AMINOTRANSFERASE INCREASED [None]
  - ASPARTATE AMINOTRANSFERASE INCREASED [None]
  - GAMMA-GLUTAMYLTRANSFERASE INCREASED [None]
  - LIVER DISORDER [None]
